FAERS Safety Report 14093346 (Version 2)
Quarter: 2017Q4

REPORT INFORMATION
  Report Type: Report from Study
  Country: GB (occurrence: GB)
  Receive Date: 20171016
  Receipt Date: 20171020
  Transmission Date: 20180321
  Serious: Yes (Death, Hospitalization)
  Sender: FDA-Public Use
  Company Number: GB-JNJFOC-20171013356

PATIENT
  Age: 58 Year
  Sex: Male
  Weight: 75.5 kg

DRUGS (10)
  1. COCODAMOL [Concomitant]
     Active Substance: ACETAMINOPHEN\CODEINE PHOSPHATE
     Indication: PAIN
     Route: 048
     Dates: start: 20170925
  2. FRAGMIN [Concomitant]
     Active Substance: DALTEPARIN SODIUM
     Indication: PULMONARY EMBOLISM
     Route: 058
     Dates: start: 201707, end: 20170908
  3. IBRUTINIB [Suspect]
     Active Substance: IBRUTINIB
     Indication: OESOPHAGEAL CARCINOMA
     Route: 048
     Dates: start: 20170918, end: 20171004
  4. TINZAPARIN [Concomitant]
     Active Substance: TINZAPARIN
     Indication: PULMONARY EMBOLISM
     Dosage: 15000 UNITS
     Route: 065
     Dates: end: 20171004
  5. FRAGMIN [Concomitant]
     Active Substance: DALTEPARIN SODIUM
     Indication: DEEP VEIN THROMBOSIS
     Route: 058
     Dates: start: 201707, end: 20170908
  6. FRAGMIN [Concomitant]
     Active Substance: DALTEPARIN SODIUM
     Indication: DEEP VEIN THROMBOSIS
     Route: 058
     Dates: start: 20170908
  7. FRAGMIN [Concomitant]
     Active Substance: DALTEPARIN SODIUM
     Indication: PULMONARY EMBOLISM
     Route: 058
     Dates: start: 20170908
  8. GAVISCON [Concomitant]
     Active Substance: ALUMINUM HYDROXIDE\MAGNESIUM CARBONATE
     Indication: GASTROOESOPHAGEAL REFLUX DISEASE
     Route: 048
     Dates: start: 20170925
  9. FLOXACILLIN [Concomitant]
     Active Substance: FLUCLOXACILLIN
     Indication: LOCALISED INFECTION
     Route: 048
     Dates: start: 20170904, end: 20170908
  10. MACROGOL COMP [Concomitant]
     Indication: CONSTIPATION PROPHYLAXIS
     Route: 048
     Dates: start: 20170925

REACTIONS (1)
  - Upper gastrointestinal haemorrhage [Fatal]

NARRATIVE: CASE EVENT DATE: 20171004
